FAERS Safety Report 9756644 (Version 2)
Quarter: 2013Q4

REPORT INFORMATION
  Report Type: Spontaneous
  Country: US (occurrence: US)
  Receive Date: 20131213
  Receipt Date: 20131213
  Transmission Date: 20140711
  Serious: Yes (Other)
  Sender: FDA-Public Use
  Company Number: US-ASTRAZENECA-2012SE11256

PATIENT
  Age: 58 Year
  Sex: Female
  Weight: 129.7 kg

DRUGS (10)
  1. SEROQUEL [Suspect]
     Indication: BIPOLAR DISORDER
     Route: 048
  2. SEROQUEL [Suspect]
     Indication: PARANOIA
     Route: 048
  3. SEROQUEL [Suspect]
     Indication: BIPOLAR DISORDER
     Route: 048
  4. SEROQUEL [Suspect]
     Indication: PARANOIA
     Route: 048
  5. LISINOPRIL [Suspect]
     Indication: HYPERTENSION
     Route: 048
  6. GABAPENTIN [Suspect]
  7. ALPRAZOLAM [Concomitant]
     Indication: PARANOIA
  8. ALPRAZOLAM [Concomitant]
     Indication: PARANOIA
  9. METFORMIN [Concomitant]
     Indication: BLOOD GLUCOSE ABNORMAL
     Dates: start: 2012
  10. METOPROLOL TARTRATE [Concomitant]
     Indication: HYPERTENSION
     Dates: start: 2012

REACTIONS (8)
  - Cerebral haemorrhage [Unknown]
  - Panic attack [Unknown]
  - Depression [Unknown]
  - Drug effect increased [Unknown]
  - Insomnia [Unknown]
  - Adverse drug reaction [Unknown]
  - Hypoaesthesia [Unknown]
  - Somnolence [Unknown]
